FAERS Safety Report 23571489 (Version 3)
Quarter: 2024Q3

REPORT INFORMATION
  Report Type: Spontaneous
  Country: CN (occurrence: CN)
  Receive Date: 20240227
  Receipt Date: 20240704
  Transmission Date: 20241017
  Serious: Yes (Life-Threatening, Other)
  Sender: ACCORD
  Company Number: CN-MLMSERVICE-20240209-4823320-1

PATIENT
  Age: 56 Year
  Sex: Female

DRUGS (37)
  1. OXALIPLATIN [Suspect]
     Active Substance: OXALIPLATIN
     Indication: Metastases to rectum
     Dates: start: 20210318, end: 20210615
  2. PACLITAXEL [Suspect]
     Active Substance: PACLITAXEL
     Indication: Metastases to spine
     Dosage: 20 MG/ M2 ON DAYS 1 AND 8, Q4WKS, PTX WAS DILUTED IN 1000 ML SALINE
     Route: 033
     Dates: start: 20210329, end: 20210615
  3. CAMRELIZUMAB [Suspect]
     Active Substance: CAMRELIZUMAB
     Indication: Metastases to spine
     Dates: start: 20210315, end: 20210615
  4. RIVOCERANIB [Suspect]
     Active Substance: RIVOCERANIB
     Indication: Metastases to bladder
     Route: 048
     Dates: start: 20210321, end: 20210615
  5. GIMERACIL\OTERACIL\TEGAFUR [Suspect]
     Active Substance: GIMERACIL\OTERACIL POTASSIUM\TEGAFUR
     Indication: Metastases to bladder
     Dosage: PO, 40 MG, FOR 14 DAYS, Q3WKS;
     Route: 048
     Dates: start: 20210329, end: 20210615
  6. SALINE [Concomitant]
     Active Substance: SODIUM CHLORIDE
     Indication: Gastric cancer stage IV
     Dosage: 20 MG/ M2 ON DAYS 1 AND 8, Q4WKS, PTX WAS DILUTED IN 1000 ML
     Route: 033
     Dates: start: 20210329, end: 20210615
  7. OXALIPLATIN [Suspect]
     Active Substance: OXALIPLATIN
     Indication: Metastases to bone
     Dates: start: 20210318, end: 20210615
  8. SALINE [Concomitant]
     Active Substance: SODIUM CHLORIDE
     Indication: Metastases to bone
     Dosage: 20 MG/ M2 ON DAYS 1 AND 8, Q4WKS, PTX WAS DILUTED IN 1000 ML SALINE
     Route: 033
     Dates: start: 20210329, end: 20210615
  9. PACLITAXEL [Suspect]
     Active Substance: PACLITAXEL
     Indication: Metastases to spine
     Dosage: IVGTT, 50 MG/M2 ON DAYS 1 AND 8 Q4WKS, PTX WAS INFUSED INTRAVENOUSLY AT THE SAME TIME
     Dates: start: 20210329, end: 20210615
  10. OXALIPLATIN [Suspect]
     Active Substance: OXALIPLATIN
     Indication: Gastric cancer stage IV
     Dates: start: 20210318, end: 20210615
  11. PACLITAXEL [Suspect]
     Active Substance: PACLITAXEL
     Indication: Metastases to bone
     Dosage: 20 MG/ M2 ON DAYS 1 AND 8, Q4WKS, PTX WAS DILUTED IN 1000 ML SALINE
     Route: 033
     Dates: start: 20210329, end: 20210615
  12. PACLITAXEL [Suspect]
     Active Substance: PACLITAXEL
     Indication: Gastric cancer stage IV
     Dosage: 20 MG/ M2 ON DAYS 1 AND 8, Q4WKS, PTX WAS DILUTED IN 1000 ML SALINE
     Route: 033
     Dates: start: 20210329, end: 20210615
  13. CAMRELIZUMAB [Suspect]
     Active Substance: CAMRELIZUMAB
     Indication: Metastases to bone
     Dates: start: 20210315, end: 20210615
  14. GIMERACIL\OTERACIL\TEGAFUR [Suspect]
     Active Substance: GIMERACIL\OTERACIL POTASSIUM\TEGAFUR
     Indication: Metastases to bone
     Dosage: PO, 40 MG, FOR 14 DAYS, Q3WKS;
     Route: 048
     Dates: start: 20210329, end: 20210615
  15. GIMERACIL\OTERACIL\TEGAFUR [Suspect]
     Active Substance: GIMERACIL\OTERACIL POTASSIUM\TEGAFUR
     Indication: Gastric cancer stage IV
     Dosage: PO, 40 MG, FOR 14 DAYS, Q3WKS;
     Route: 048
     Dates: start: 20210329, end: 20210615
  16. RIVOCERANIB [Suspect]
     Active Substance: RIVOCERANIB
     Indication: Metastases to bone
     Route: 048
     Dates: start: 20210321, end: 20210615
  17. GIMERACIL\OTERACIL\TEGAFUR [Suspect]
     Active Substance: GIMERACIL\OTERACIL POTASSIUM\TEGAFUR
     Indication: Metastases to rectum
     Dosage: PO, 40 MG, FOR 14 DAYS, Q3WKS;
     Route: 048
     Dates: start: 20210329, end: 20210615
  18. GIMERACIL\OTERACIL\TEGAFUR [Suspect]
     Active Substance: GIMERACIL\OTERACIL POTASSIUM\TEGAFUR
     Indication: Metastases to spine
     Dosage: PO, 40 MG, FOR 14 DAYS, Q3WKS;
     Route: 048
     Dates: start: 20210329, end: 20210615
  19. GIMERACIL\OTERACIL\TEGAFUR [Suspect]
     Active Substance: GIMERACIL\OTERACIL POTASSIUM\TEGAFUR
     Indication: Metastases to peritoneum
     Dosage: PO, 40 MG, FOR 14 DAYS, Q3WKS;
     Route: 048
     Dates: start: 20210329, end: 20210615
  20. SALINE [Concomitant]
     Active Substance: SODIUM CHLORIDE
     Indication: Metastases to bladder
     Dosage: 20 MG/ M2 ON DAYS 1 AND 8, Q4WKS, PTX WAS DILUTED IN 1000 ML
     Route: 033
     Dates: start: 20210329, end: 20210615
  21. SALINE [Concomitant]
     Active Substance: SODIUM CHLORIDE
     Indication: Metastases to spine
     Dosage: 20 MG/ M2 ON DAYS 1 AND 8, Q4WKS, PTX WAS DILUTED IN 1000 ML
     Route: 033
     Dates: start: 20210329, end: 20210615
  22. SALINE [Concomitant]
     Active Substance: SODIUM CHLORIDE
     Indication: Metastases to rectum
     Dosage: 20 MG/ M2 ON DAYS 1 AND 8, Q4WKS, PTX WAS DILUTED IN 1000 ML
     Route: 033
     Dates: start: 20210329, end: 20210615
  23. SALINE [Concomitant]
     Active Substance: SODIUM CHLORIDE
     Indication: Metastases to peritoneum
     Dosage: 20 MG/ M2 ON DAYS 1 AND 8, Q4WKS, PTX WAS DILUTED IN 1000 ML
     Route: 033
     Dates: start: 20210329, end: 20210615
  24. RIVOCERANIB [Suspect]
     Active Substance: RIVOCERANIB
     Indication: Metastases to spine
     Route: 048
     Dates: start: 20210321, end: 20210615
  25. RIVOCERANIB [Suspect]
     Active Substance: RIVOCERANIB
     Indication: Metastases to peritoneum
     Route: 048
     Dates: start: 20210321, end: 20210615
  26. RIVOCERANIB [Suspect]
     Active Substance: RIVOCERANIB
     Indication: Metastases to rectum
     Route: 048
     Dates: start: 20210321, end: 20210615
  27. CAMRELIZUMAB [Suspect]
     Active Substance: CAMRELIZUMAB
     Indication: Metastases to bladder
     Dates: start: 20210315, end: 20210615
  28. CAMRELIZUMAB [Suspect]
     Active Substance: CAMRELIZUMAB
     Indication: Metastases to rectum
     Dates: start: 20210315, end: 20210615
  29. CAMRELIZUMAB [Suspect]
     Active Substance: CAMRELIZUMAB
     Indication: Metastases to peritoneum
     Dates: start: 20210315, end: 20210615
  30. OXALIPLATIN [Suspect]
     Active Substance: OXALIPLATIN
     Indication: Metastases to spine
     Dates: start: 20210318, end: 20210615
  31. OXALIPLATIN [Suspect]
     Active Substance: OXALIPLATIN
     Indication: Metastases to peritoneum
     Dates: start: 20210318, end: 20210615
  32. OXALIPLATIN [Suspect]
     Active Substance: OXALIPLATIN
     Indication: Metastases to bladder
     Dates: start: 20210318, end: 20210615
  33. PACLITAXEL [Suspect]
     Active Substance: PACLITAXEL
     Indication: Metastases to rectum
     Dosage: 20 MG/ M2 ON DAYS 1 AND 8, Q4WKS, PTX WAS DILUTED IN 1000 ML SALINE
     Route: 033
     Dates: start: 20210329, end: 20210615
  34. PACLITAXEL [Suspect]
     Active Substance: PACLITAXEL
     Indication: Metastases to peritoneum
     Dosage: 20 MG/ M2 ON DAYS 1 AND 8, Q4WKS, PTX WAS DILUTED IN 1000 ML SALINE
     Route: 033
     Dates: start: 20210329, end: 20210615
  35. PACLITAXEL [Suspect]
     Active Substance: PACLITAXEL
     Indication: Metastases to bladder
     Dosage: 20 MG/ M2 ON DAYS 1 AND 8, Q4WKS, PTX WAS DILUTED IN 1000 ML SALINE
     Route: 033
     Dates: start: 20210329, end: 20210615
  36. CAMRELIZUMAB [Suspect]
     Active Substance: CAMRELIZUMAB
     Indication: Gastric cancer stage IV
     Dates: start: 20210315, end: 20210615
  37. RIVOCERANIB [Suspect]
     Active Substance: RIVOCERANIB
     Indication: Gastric cancer stage IV
     Route: 048
     Dates: start: 20210321, end: 20210615

REACTIONS (4)
  - Bacterial infection [Unknown]
  - Gastrointestinal haemorrhage [Unknown]
  - Fungal infection [Unknown]
  - Myelosuppression [Unknown]

NARRATIVE: CASE EVENT DATE: 20210601
